FAERS Safety Report 9208336 (Version 1)
Quarter: 2013Q2

REPORT INFORMATION
  Report Type: Spontaneous
  Country: BR (occurrence: BR)
  Receive Date: 20130403
  Receipt Date: 20130403
  Transmission Date: 20140414
  Serious: Yes (Other)
  Sender: FDA-Public Use
  Company Number: BR-AMGEN-BRASP2013022764

PATIENT
  Age: 30 Year
  Sex: Male
  Weight: 69 kg

DRUGS (1)
  1. ENBREL [Suspect]
     Indication: JUVENILE IDIOPATHIC ARTHRITIS
     Dosage: 50 MG, ONCE WEEKLY
     Dates: start: 2008

REACTIONS (2)
  - Nephrolithiasis [Not Recovered/Not Resolved]
  - Pain [Unknown]
